FAERS Safety Report 18115918 (Version 1)
Quarter: 2020Q3

REPORT INFORMATION
  Report Type: Spontaneous
  Country: CN (occurrence: CN)
  Receive Date: 20200805
  Receipt Date: 20200805
  Transmission Date: 20201103
  Serious: Yes (Death, Life-Threatening, Other)
  Sender: FDA-Public Use
  Company Number: CN-FRESENIUS KABI-FK202008006

PATIENT
  Age: 36 Year
  Sex: Male

DRUGS (3)
  1. ZOLPIDEM TARTRATE. [Suspect]
     Active Substance: ZOLPIDEM TARTRATE
     Indication: HOMICIDE
     Route: 048
  2. POTASSIUM CHLORIDE. [Suspect]
     Active Substance: POTASSIUM CHLORIDE
     Indication: HOMICIDE
     Route: 042
  3. PROPOFOL (MANUFACTURER UNKNOWN) [Suspect]
     Active Substance: PROPOFOL
     Indication: HOMICIDE
     Route: 042

REACTIONS (8)
  - Acute respiratory failure [Fatal]
  - Overdose [Unknown]
  - Circulatory collapse [Fatal]
  - Myocardial haemorrhage [Unknown]
  - Pulmonary congestion [Unknown]
  - Myocardial oedema [Unknown]
  - Pulmonary haemorrhage [Unknown]
  - Pulmonary oedema [Unknown]
